FAERS Safety Report 22821804 (Version 5)
Quarter: 2023Q4

REPORT INFORMATION
  Report Type: Spontaneous
  Country: US (occurrence: US)
  Receive Date: 20230814
  Receipt Date: 20231102
  Transmission Date: 20240110
  Serious: Yes (Other)
  Sender: FDA-Public Use
  Company Number: US-ORGANON-O2308USA001283

PATIENT
  Age: 25 Year
  Sex: Female
  Weight: 131.97 kg

DRUGS (1)
  1. NEXPLANON [Suspect]
     Active Substance: ETONOGESTREL
     Indication: Contraception
     Dosage: 1 IMPLANT OF 68 MG IN RIGHT ARM (NON-DOMINANT ARM) EVERY 3 YEARS
     Route: 059
     Dates: start: 20221116, end: 2023

REACTIONS (3)
  - Metabolic surgery [Unknown]
  - Menstruation irregular [Not Recovered/Not Resolved]
  - Device breakage [Recovered/Resolved]

NARRATIVE: CASE EVENT DATE: 20221101
